FAERS Safety Report 12155831 (Version 1)
Quarter: 2016Q1

REPORT INFORMATION
  Report Type: Report from Study
  Country: JP (occurrence: JP)
  Receive Date: 20160307
  Receipt Date: 20160307
  Transmission Date: 20160526
  Serious: Yes (Death)
  Sender: FDA-Public Use
  Company Number: JP-TEVA-639354ISR

PATIENT

DRUGS (2)
  1. TS-1 [Suspect]
     Active Substance: GIMERACIL\OTERACIL\TEGAFUR
     Indication: GASTRIC CANCER
     Dosage: 80 MG/M2, PER DAY ON DAYS 1-21 OF EVERY 5-WEEK CYCLE
     Route: 048
  2. CISPLATIN. [Suspect]
     Active Substance: CISPLATIN
     Indication: GASTRIC CANCER
     Dosage: 60 MG/M2, CYCLIC (ON DAY 8 OF EVERY 5-WEEK CYCLE)

REACTIONS (1)
  - Cardio-respiratory arrest [Fatal]
